FAERS Safety Report 9514114 (Version 3)
Quarter: 2014Q1

REPORT INFORMATION
  Report Type: Spontaneous
  Country: US (occurrence: US)
  Receive Date: 20130910
  Receipt Date: 20140123
  Transmission Date: 20141002
  Serious: Yes (Hospitalization)
  Sender: FDA-Public Use
  Company Number: US-B.I. PHARMACEUTICALS,INC./RIDGEFIELD-2013-BI-27645BP

PATIENT
  Sex: Male
  Weight: 108.41 kg

DRUGS (18)
  1. PRADAXA [Suspect]
     Indication: ATRIAL FIBRILLATION
     Dosage: 150 MG
     Dates: start: 20110105, end: 20120323
  2. DIOVAN [Concomitant]
     Dosage: 160 MG
     Route: 048
     Dates: start: 2009
  3. ADVAIR [Concomitant]
     Indication: CHRONIC OBSTRUCTIVE PULMONARY DISEASE
     Route: 055
     Dates: start: 2009
  4. VESICARE [Concomitant]
     Dosage: 5 MG
     Route: 048
     Dates: start: 2009
  5. FLUTICASONE [Concomitant]
  6. ALLOPURINOL [Concomitant]
     Indication: GOUT
     Dosage: 100 MG
     Dates: start: 2006
  7. ASPIRIN [Concomitant]
     Dosage: 81 MG
     Route: 048
  8. ZOCOR [Concomitant]
     Route: 048
     Dates: start: 2006
  9. ISOSORBIDE MONONITRATE [Concomitant]
     Dosage: 30 MG
     Route: 048
     Dates: start: 2009
  10. ALDACTONE [Concomitant]
     Route: 048
     Dates: start: 2008, end: 2012
  11. SPIRIVA [Concomitant]
     Indication: CHRONIC OBSTRUCTIVE PULMONARY DISEASE
     Dosage: 1 PUF
     Route: 055
     Dates: start: 2012
  12. TORSEMIDE [Concomitant]
     Dates: start: 2009
  13. NOVOLIN INSULIN [Concomitant]
     Route: 058
     Dates: start: 2006
  14. LUMIGAN EYE DROPS [Concomitant]
     Indication: GLAUCOMA
     Dates: start: 2008
  15. CARVEDILOL [Concomitant]
     Dosage: 3.125 MG
     Route: 048
     Dates: start: 2008
  16. TRUSOPT [Concomitant]
     Indication: GLAUCOMA
  17. OXYGEN [Concomitant]
     Indication: CHRONIC OBSTRUCTIVE PULMONARY DISEASE
  18. ACETAMINOPHEN/CODEINE [Concomitant]
     Route: 048

REACTIONS (2)
  - Gastrointestinal haemorrhage [Unknown]
  - Haemorrhagic anaemia [Unknown]
